FAERS Safety Report 4309037-4 (Version None)
Quarter: 2004Q1

REPORT INFORMATION
  Report Type: 
  Country: None (occurrence: None)
  Receive Date: 20040226
  Receipt Date: 20030612
  Transmission Date: 20041129
  Serious: Yes (Death)
  Sender: FDA-Public Use
  Company Number: 030612-PM0056-00

PATIENT
  Age: 35 Year
  Sex: 0

DRUGS (1)
  1. DESOXYN [Suspect]
     Dosage: P.O.
     Route: 048
     Dates: end: 19990101

REACTIONS (1)
  - DRUG ABUSER [None]
